FAERS Safety Report 4457328-9 (Version None)
Quarter: 2004Q3

REPORT INFORMATION
  Report Type: 
  Country: None (occurrence: None)
  Receive Date: 20040921
  Receipt Date: 20040913
  Transmission Date: 20050211
  Serious: Yes (Hospitalization)
  Sender: FDA-Public Use
  Company Number: D0044667A

PATIENT
  Age: 20 Year
  Sex: Female

DRUGS (1)
  1. LAMICTAL [Suspect]
     Indication: PROPHYLAXIS

REACTIONS (3)
  - AKATHISIA [None]
  - CHILLS [None]
  - TREMOR [None]
